FAERS Safety Report 7291715-9 (Version None)
Quarter: 2011Q1

REPORT INFORMATION
  Report Type: 
  Country: None (occurrence: None)
  Receive Date: 20110214
  Receipt Date: 20110204
  Transmission Date: 20110831
  Serious: Yes (Other)
  Sender: FDA-Public Use
  Company Number: FR-PFIZER INC-2011026072

PATIENT
  Age: 45 Year
  Sex: Female

DRUGS (5)
  1. LAROXYL [Concomitant]
     Dosage: 8 DF, 1X/DAY
  2. NERATINIB [Suspect]
     Dosage: 200 MG, 1X/DAY
     Route: 048
     Dates: start: 20101029
  3. TEMSIROLIMUS [Suspect]
     Indication: BREAST CANCER
     Dosage: 25 MG, WEEKLY
     Route: 042
     Dates: start: 20101029
  4. XANAX [Concomitant]
     Dosage: AS NEEDED + IN THE EVENING
  5. NERATINIB [Suspect]
     Indication: BREAST CANCER
     Dosage: 160 MG, 1X/DAY
     Route: 048

REACTIONS (1)
  - GASTRITIS [None]
